FAERS Safety Report 8267021-2 (Version None)
Quarter: 2012Q2

REPORT INFORMATION
  Report Type: 
  Country: None (occurrence: None)
  Receive Date: 20120409
  Receipt Date: 20120402
  Transmission Date: 20120825
  Serious: No
  Sender: FDA-Public Use
  Company Number: US-PFIZER INC-2012084359

PATIENT
  Sex: Female

DRUGS (2)
  1. TOVIAZ [Suspect]
     Indication: CYSTITIS
     Dosage: UNK
  2. TOVIAZ [Suspect]
     Indication: DYSURIA

REACTIONS (1)
  - ABDOMINAL PAIN UPPER [None]
